FAERS Safety Report 9008892 (Version 1)
Quarter: 2013Q1

REPORT INFORMATION
  Report Type: Report from Study
  Country: JP (occurrence: JP)
  Receive Date: 20130111
  Receipt Date: 20130111
  Transmission Date: 20140127
  Serious: Yes (Hospitalization)
  Sender: FDA-Public Use
  Company Number: JP-009507513-2012SP026957

PATIENT
  Age: 62 Year
  Sex: Female
  Weight: 46 kg

DRUGS (5)
  1. PEGINTERFERON ALFA-2B [Suspect]
     Indication: CHRONIC HEPATITIS C
     Dosage: 1.5 ?G/KG, QW
     Route: 058
     Dates: start: 20120229, end: 20120318
  2. REBETOL [Suspect]
     Indication: CHRONIC HEPATITIS C
     Dosage: 400 MG, QD
     Route: 048
     Dates: start: 20120229, end: 20120318
  3. TELAVIC [Suspect]
     Indication: CHRONIC HEPATITIS C
     Dosage: 1500 MG, QD
     Route: 048
     Dates: start: 20120302, end: 20120318
  4. MOHRUS [Concomitant]
     Indication: BACK PAIN
     Dosage: UNK UNK, PRN
     Route: 061
     Dates: start: 20120228, end: 20120318
  5. POSTERISAN [Concomitant]
     Indication: HAEMORRHOIDAL HAEMORRHAGE
     Dosage: 2 G/DAY, AS NEEDED
     Route: 061
     Dates: start: 20120305, end: 20120318

REACTIONS (2)
  - Melaena [Recovering/Resolving]
  - Loss of consciousness [Not Recovered/Not Resolved]
